FAERS Safety Report 7531198-4 (Version None)
Quarter: 2011Q2

REPORT INFORMATION
  Report Type: 
  Country: None (occurrence: None)
  Receive Date: 20110531
  Receipt Date: 20110517
  Transmission Date: 20111010
  Serious: Yes (Other)
  Sender: FDA-Public Use
  Company Number: B0721809A

PATIENT
  Sex: 0

DRUGS (2)
  1. ADEFOVIR DIPIVOXIL [Suspect]
     Indication: HEPATITIS B
  2. LAMIVUDINE (EPIVIR HBV) [Suspect]
     Indication: HEPATITIS B

REACTIONS (4)
  - OSTEOMALACIA [None]
  - HYPOPHOSPHATAEMIA [None]
  - ARTHRALGIA [None]
  - BONE PAIN [None]
